FAERS Safety Report 20759081 (Version 1)
Quarter: 2022Q2

REPORT INFORMATION
  Report Type: Spontaneous
  Country: US (occurrence: US)
  Receive Date: 20220427
  Receipt Date: 20220427
  Transmission Date: 20220720
  Serious: No
  Sender: FDA-Public Use
  Company Number: US-BioHaven Pharmaceuticals-2021BHV003169

PATIENT
  Sex: Female

DRUGS (2)
  1. NURTEC ODT [Suspect]
     Active Substance: RIMEGEPANT SULFATE
     Indication: Migraine
     Dosage: 1 TABLET AS NEEDED
     Route: 065
     Dates: start: 20211217, end: 202112
  2. ZONISAMIDE [Concomitant]
     Active Substance: ZONISAMIDE
     Indication: Prophylaxis
     Dosage: NEEDS TO BE DRINKING 6-8 GLASSES OF WATER A DAY WITH THE ZONISAMIDE.
     Route: 065
     Dates: start: 20211216

REACTIONS (4)
  - Asthenia [Recovered/Resolved]
  - Fatigue [Recovered/Resolved]
  - Decreased appetite [Recovered/Resolved]
  - Eating disorder [Recovered/Resolved]

NARRATIVE: CASE EVENT DATE: 20211217
